FAERS Safety Report 5475392-5 (Version None)
Quarter: 2007Q4

REPORT INFORMATION
  Report Type: 
  Country: None (occurrence: None)
  Receive Date: 20071003
  Receipt Date: 20071001
  Transmission Date: 20080405
  Serious: Yes (Death, Hospitalization)
  Sender: FDA-Public Use
  Company Number: PHFR2007GB02192

PATIENT
  Sex: Female

DRUGS (4)
  1. ZOMETA [Suspect]
     Indication: HYPERCALCAEMIA OF MALIGNANCY
     Route: 065
  2. PAMIDRONATE DISODIUM [Suspect]
     Indication: HYPERCALCAEMIA OF MALIGNANCY
     Route: 065
  3. CALCITONIN-SALMON [Suspect]
     Indication: HYPERCALCAEMIA OF MALIGNANCY
     Route: 058
  4. CALCITONIN-SALMON [Suspect]
     Route: 045

REACTIONS (4)
  - ANTIBODY TEST POSITIVE [None]
  - BLOOD CALCIUM INCREASED [None]
  - DEATH [None]
  - HYPERCALCAEMIA [None]
